FAERS Safety Report 7505714-2 (Version None)
Quarter: 2011Q2

REPORT INFORMATION
  Report Type: 
  Country: None (occurrence: None)
  Receive Date: 20110526
  Receipt Date: 20110525
  Transmission Date: 20111010
  Serious: Yes (Death, Disabling, Other)
  Sender: FDA-Public Use
  Company Number: JP-PFIZER INC-2011071144

PATIENT
  Age: 90 Year
  Sex: Female
  Weight: 38.5 kg

DRUGS (15)
  1. ZOLOFT [Suspect]
     Indication: DEPRESSION
     Dosage: 25 MG, 1X/DAY
     Route: 048
     Dates: start: 20110307, end: 20110309
  2. ENPRAL [Concomitant]
     Indication: GASTRIC ULCER
     Dosage: 10 MG, 1X/DAY
     Route: 048
     Dates: start: 20101210, end: 20110310
  3. RHEUMATREX [Concomitant]
     Indication: MUSCULOSKELETAL PAIN
     Dosage: 2 MG, 3X/WEEK
     Route: 048
     Dates: start: 20101210, end: 20110310
  4. BONALON [Concomitant]
     Indication: OSTEOPOROSIS
     Dosage: 35 MG, WEEKLY
     Route: 048
     Dates: start: 20101210, end: 20110310
  5. ACETAMINOPHEN [Concomitant]
     Indication: ARTHRALGIA
     Dosage: 300 MG, 3X/DAY
     Route: 048
     Dates: start: 20101210, end: 20110310
  6. TOLEDOMIN [Concomitant]
     Dosage: UNK
  7. ENALAPRIL [Concomitant]
     Indication: HYPERTENSION
     Dosage: 5 MG, 2X/DAY
     Route: 048
     Dates: start: 20101210, end: 20110310
  8. CARVEDILOL [Concomitant]
     Indication: HYPERTENSION
     Dosage: 10 MG, 1X/DAY
     Route: 048
     Dates: start: 20101210, end: 20110310
  9. AZULFIDINE [Concomitant]
     Indication: MUSCULOSKELETAL PAIN
     Dosage: 500 MG, 2X/DAY
     Route: 048
     Dates: start: 20101210, end: 20110310
  10. SELPAS [Concomitant]
     Indication: GASTRIC ULCER
     Dosage: 50 MG, 3X/DAY
     Route: 048
     Dates: start: 20101210, end: 20110310
  11. PREDNISOLONE [Concomitant]
     Indication: MUSCULOSKELETAL PAIN
     Dosage: 12.5 MG, 1X/DAY
     Route: 048
     Dates: start: 20101210, end: 20110310
  12. BUFFERIN [Concomitant]
     Indication: ANGINA PECTORIS
     Dosage: 81 MG, 1X/DAY
     Route: 048
     Dates: start: 20101210, end: 20110310
  13. BROTIZOLAM [Concomitant]
     Indication: INSOMNIA
     Dosage: 0.25 MG, 1X/DAY
     Route: 048
     Dates: start: 20101210, end: 20110310
  14. LOXONIN [Concomitant]
     Dosage: UNK
  15. NIFEDIPINE [Concomitant]
     Indication: HYPERTENSION
     Dosage: 20 MG, 2X/DAY
     Route: 048
     Dates: start: 20101210, end: 20110310

REACTIONS (3)
  - INAPPROPRIATE ANTIDIURETIC HORMONE SECRETION [None]
  - RESPIRATORY FAILURE [None]
  - IMMUNE SYSTEM DISORDER [None]
